FAERS Safety Report 5505889-0 (Version None)
Quarter: 2007Q4

REPORT INFORMATION
  Report Type: 
  Country: None (occurrence: None)
  Receive Date: 20071102
  Receipt Date: 20071022
  Transmission Date: 20080405
  Serious: Yes (Disabling)
  Sender: FDA-Public Use
  Company Number: US-PFIZER INC-2007090223

PATIENT
  Sex: Male

DRUGS (2)
  1. GEODON [Suspect]
     Indication: ANXIETY
  2. GEODON [Suspect]
     Indication: DEPRESSION

REACTIONS (3)
  - NERVE INJURY [None]
  - PAIN [None]
  - TARDIVE DYSKINESIA [None]
